FAERS Safety Report 7965249-X (Version None)
Quarter: 2011Q4

REPORT INFORMATION
  Report Type: 
  Country: None (occurrence: None)
  Receive Date: 20111208
  Receipt Date: 20111201
  Transmission Date: 20120403
  Serious: Yes (Hospitalization, Disabling)
  Sender: FDA-Public Use
  Company Number: RU-BAYER-201038286GPV

PATIENT
  Age: 81 Year
  Sex: Male
  Weight: 67 kg

DRUGS (4)
  1. SORAFENIB (RAF KINASE INHIBITOR) [Suspect]
     Route: 048
     Dates: start: 20100827, end: 20100929
  2. SORAFENIB (RAF KINASE INHIBITOR) [Suspect]
     Indication: HEPATIC NEOPLASM MALIGNANT
     Route: 048
     Dates: start: 20100514, end: 20100823
  3. NIFEDIPINE [Suspect]
     Indication: HYPERTENSION
     Dosage: 10 MG, QD
     Dates: start: 20090601, end: 20100823
  4. NIFEDIPINE [Suspect]
     Dosage: 10 MG (DAILY DOSE), QD,

REACTIONS (2)
  - ENCEPHALOPATHY [None]
  - DISORIENTATION [None]
